FAERS Safety Report 20345715 (Version 1)
Quarter: 2022Q1

REPORT INFORMATION
  Report Type: Report from Study
  Country: US (occurrence: US)
  Receive Date: 20220118
  Receipt Date: 20220118
  Transmission Date: 20220423
  Serious: Yes (Other)
  Sender: FDA-Public Use
  Company Number: US-GLAXOSMITHKLINE-US2022AMR007077

PATIENT
  Age: 51 Year
  Sex: Male

DRUGS (1)
  1. BELANTAMAB MAFODOTIN [Suspect]
     Active Substance: BELANTAMAB MAFODOTIN
     Indication: Plasma cell myeloma
     Dosage: UNKDOSE 2.4
     Dates: start: 202008, end: 202009

REACTIONS (2)
  - Plasma cell myeloma [Unknown]
  - Vision blurred [Unknown]

NARRATIVE: CASE EVENT DATE: 20200801
